FAERS Safety Report 10024167 (Version 1)
Quarter: 2014Q1

REPORT INFORMATION
  Report Type: Spontaneous
  Country: US (occurrence: None)
  Receive Date: 20140304
  Receipt Date: 20140304
  Transmission Date: 20141002
  Serious: Yes (Hospitalization, Other)
  Sender: FDA-Public Use
  Company Number: RB-55749-2013

PATIENT
  Age: 20 Year
  Sex: Male

DRUGS (3)
  1. SUBOXONE [Suspect]
     Indication: DRUG DEPENDENCE
     Dosage: 12 MG TAPERED OFF SUBLINGUAL?
     Dates: start: 2008, end: 201301
  2. SUBOXONE (8 MG, 8 MG) [Suspect]
     Indication: DRUG DEPENDENCE
     Route: 060
     Dates: start: 2008, end: 2011
  3. SUBOXONE 8 MG [Suspect]
     Indication: DRUG DEPENDENCE
     Dosage: 16 MG SUBOXONE FILM SUBLINGUAL
     Route: 060
     Dates: end: 2012

REACTIONS (7)
  - Mental impairment [None]
  - Foaming at mouth [None]
  - Feeling abnormal [None]
  - Anxiety [None]
  - Obsessive-compulsive disorder [None]
  - Condition aggravated [None]
  - Wrong technique in drug usage process [None]
